FAERS Safety Report 24696982 (Version 1)
Quarter: 2024Q4

REPORT INFORMATION
  Report Type: Spontaneous
  Country: FR (occurrence: FR)
  Receive Date: 20241204
  Receipt Date: 20241204
  Transmission Date: 20250115
  Serious: Yes (Other)
  Sender: AMGEN
  Company Number: FR-AMGEN-FRASP2024234396

PATIENT
  Age: 79 Year
  Sex: Male

DRUGS (5)
  1. CARFILZOMIB [Suspect]
     Active Substance: CARFILZOMIB
     Indication: Plasma cell myeloma
     Dosage: UNK
     Route: 065
  2. BELANTAMAB MAFODOTIN [Suspect]
     Active Substance: BELANTAMAB MAFODOTIN
     Indication: Product used for unknown indication
     Dosage: 2.5 MILLIGRAM/KILOGRAM, Q3WK (EVERY 3 WEEKS)
     Route: 040
     Dates: start: 202105, end: 202211
  3. SELINEXOR [Concomitant]
     Active Substance: SELINEXOR
     Dosage: UNK
     Route: 065
  4. BORTEZOMIB [Concomitant]
     Active Substance: BORTEZOMIB
     Dosage: UNK
     Route: 065
  5. Arsenal [Concomitant]
     Dosage: UNK
     Route: 065

REACTIONS (6)
  - Immunosuppression [Unknown]
  - COVID-19 [Unknown]
  - Nephrotic syndrome [Unknown]
  - Focal segmental glomerulosclerosis [Unknown]
  - Left ventricular hypertrophy [Unknown]
  - Therapeutic product effect incomplete [Unknown]

NARRATIVE: CASE EVENT DATE: 20220101
